FAERS Safety Report 8400337-5 (Version None)
Quarter: 2012Q2

REPORT INFORMATION
  Report Type: 
  Country: None (occurrence: None)
  Receive Date: 20120531
  Receipt Date: 20120523
  Transmission Date: 20120825
  Serious: Yes (Hospitalization, Other)
  Sender: FDA-Public Use
  Company Number: JP-ACTELION-A-CH2010-35034

PATIENT
  Sex: Female
  Weight: 57 kg

DRUGS (14)
  1. TRACLEER [Interacting]
     Dosage: 62.5 MG, BID
     Route: 048
     Dates: start: 20090905, end: 20090928
  2. OXYGEN [Concomitant]
  3. BERAPROST SODIUM [Interacting]
     Dosage: UNK
     Dates: end: 20090902
  4. CARVEDILOL [Concomitant]
  5. PIMOBENDAN [Concomitant]
  6. DIGOXIN [Concomitant]
  7. TRACLEER [Interacting]
     Dosage: 62.5 MG, BID
     Route: 048
     Dates: start: 20091013, end: 20091014
  8. BERAPROST SODIUM [Interacting]
     Dosage: UNK
     Dates: start: 20090907
  9. TRACLEER [Suspect]
     Indication: PULMONARY HYPERTENSION
     Dosage: 62.5 MG, BID
     Route: 048
     Dates: start: 20090824, end: 20090902
  10. TRACLEER [Interacting]
     Dosage: 62.5 MG, BID
     Route: 048
     Dates: start: 20091004, end: 20091007
  11. TORSEMIDE [Concomitant]
  12. MILRINONE [Concomitant]
  13. CANDESARTAN CILEXETIL [Concomitant]
  14. SPIRONOLACTONE [Concomitant]

REACTIONS (15)
  - HAEMOGLOBIN DECREASED [None]
  - FLUSHING [None]
  - CONCOMITANT DISEASE AGGRAVATED [None]
  - COUGH [None]
  - ABDOMINAL PAIN [None]
  - CARDIAC FAILURE [None]
  - ANAEMIA [None]
  - RED BLOOD CELL COUNT DECREASED [None]
  - HAEMATOCRIT DECREASED [None]
  - BLOOD PRESSURE DECREASED [None]
  - DRUG INTERACTION [None]
  - DRUG TOLERANCE DECREASED [None]
  - MALAISE [None]
  - HEADACHE [None]
  - DIZZINESS [None]
